FAERS Safety Report 6249607-X (Version None)
Quarter: 2009Q2

REPORT INFORMATION
  Report Type: 
  Country: None (occurrence: None)
  Receive Date: 20090624
  Receipt Date: 20090610
  Transmission Date: 20091009
  Serious: Yes (Hospitalization)
  Sender: FDA-Public Use
  Company Number: 230281K09CAN

PATIENT
  Age: 40 Year
  Sex: Male

DRUGS (1)
  1. REBIF [Suspect]
     Indication: RELAPSING-REMITTING MULTIPLE SCLEROSIS
     Dosage: 22 MCG, 3 IN 1 WEEKS, 22 MCG, 3 IN 1 WEEKS, SUBCUTANEOUS, 44 MCG, 3 IN 1 WEEKS, SUBCUTANEOUS
     Route: 058
     Dates: start: 20090430, end: 20090101

REACTIONS (6)
  - FATIGUE [None]
  - HEADACHE [None]
  - INJECTION SITE HAEMATOMA [None]
  - INJECTION SITE PAIN [None]
  - MYALGIA [None]
  - PANIC ATTACK [None]
